FAERS Safety Report 19006839 (Version 1)
Quarter: 2021Q1

REPORT INFORMATION
  Report Type: Spontaneous
  Country: US (occurrence: US)
  Receive Date: 20210312
  Receipt Date: 20210312
  Transmission Date: 20210420
  Serious: No
  Sender: FDA-Public Use
  Company Number: None

PATIENT
  Age: 57 Year
  Sex: Female
  Weight: 94.5 kg

DRUGS (14)
  1. CYMBALTA [Concomitant]
     Active Substance: DULOXETINE HYDROCHLORIDE
  2. ZINC. [Concomitant]
     Active Substance: ZINC
  3. OMEPRAZOLE. [Concomitant]
     Active Substance: OMEPRAZOLE
  4. OXYBUTININ [Concomitant]
     Active Substance: OXYBUTYNIN
  5. POTASSIUM [Concomitant]
     Active Substance: POTASSIUM
  6. ABILIFY [Concomitant]
     Active Substance: ARIPIPRAZOLE
  7. ALENDRONATE [Concomitant]
     Active Substance: ALENDRONATE SODIUM
  8. VITAMIN B12 [Concomitant]
     Active Substance: CYANOCOBALAMIN
  9. MAGNESIUM [Concomitant]
     Active Substance: MAGNESIUM
  10. VIVITROL [Suspect]
     Active Substance: NALTREXONE
     Indication: ALCOHOL ABUSE
     Dosage: ?          OTHER FREQUENCY:1 INJECTION / 28 D;?
     Route: 030
     Dates: start: 20210209, end: 20210310
  11. CALCIUM [Concomitant]
     Active Substance: CALCIUM
  12. ALBUTEROL INHALER [Concomitant]
     Active Substance: ALBUTEROL
  13. HUMIRA [Concomitant]
     Active Substance: ADALIMUMAB
  14. D [Concomitant]

REACTIONS (4)
  - Skin warm [None]
  - Pruritus [None]
  - Erythema [None]
  - Swelling [None]

NARRATIVE: CASE EVENT DATE: 20210310
